FAERS Safety Report 17135833 (Version 1)
Quarter: 2019Q4

REPORT INFORMATION
  Report Type: Spontaneous
  Country: US (occurrence: US)
  Receive Date: 20191210
  Receipt Date: 20191210
  Transmission Date: 20200122
  Serious: No
  Sender: FDA-Public Use
  Company Number: US-BIOGEN-2019BI00814351

PATIENT
  Sex: Female

DRUGS (1)
  1. AVONEX [Suspect]
     Active Substance: INTERFERON BETA-1A
     Indication: MULTIPLE SCLEROSIS
     Route: 030
     Dates: start: 20130412, end: 20130516

REACTIONS (5)
  - Pyrexia [Unknown]
  - Drug intolerance [Unknown]
  - Mobility decreased [Unknown]
  - Multiple sclerosis relapse [Unknown]
  - Disturbance in attention [Unknown]
